FAERS Safety Report 14759401 (Version 1)
Quarter: 2018Q2

REPORT INFORMATION
  Report Type: Spontaneous
  Country: GB (occurrence: GB)
  Receive Date: 20180413
  Receipt Date: 20180413
  Transmission Date: 20180711
  Serious: Yes (Hospitalization, Other)
  Sender: FDA-Public Use
  Company Number: GB-IMPAX LABORATORIES, INC-2018-IPXL-01159

PATIENT
  Age: 18 Year
  Sex: Female

DRUGS (5)
  1. GLYBURIDE. [Suspect]
     Active Substance: GLYBURIDE
     Dosage: UNK
     Route: 065
  2. GLYBURIDE. [Suspect]
     Active Substance: GLYBURIDE
     Indication: MONOGENIC DIABETES
     Dosage: HIGH DOSE, UNK
     Route: 065
     Dates: end: 2016
  3. SITAGLIPTIN [Suspect]
     Active Substance: SITAGLIPTIN
     Indication: MONOGENIC DIABETES
     Dosage: UNK
     Route: 065
  4. SITAGLIPTIN [Suspect]
     Active Substance: SITAGLIPTIN
     Dosage: UNK, TWICE A DAY
     Route: 065
  5. GLYBURIDE. [Suspect]
     Active Substance: GLYBURIDE
     Dosage: UNK, TWICE A DAY
     Route: 065

REACTIONS (1)
  - Diabetic ketoacidosis [Recovered/Resolved]
